FAERS Safety Report 23319361 (Version 1)
Quarter: 2023Q4

REPORT INFORMATION
  Report Type: Spontaneous
  Country: US (occurrence: US)
  Receive Date: 20231220
  Receipt Date: 20231220
  Transmission Date: 20240109
  Serious: No
  Sender: FDA-Public Use
  Company Number: US-Accord-376455

PATIENT
  Age: 66 Year
  Sex: Female
  Weight: 58.51 kg

DRUGS (1)
  1. BUPROPION HYDROCHLORIDE [Suspect]
     Active Substance: BUPROPION HYDROCHLORIDE
     Indication: Depression
     Dosage: EXTENDED RELEASE TABLETS; DAILY?STRENGTH: 300 MG
     Route: 048
     Dates: start: 202308

REACTIONS (2)
  - Pruritus [Not Recovered/Not Resolved]
  - Product odour abnormal [Unknown]

NARRATIVE: CASE EVENT DATE: 20230801
